FAERS Safety Report 23191545 (Version 4)
Quarter: 2023Q4

REPORT INFORMATION
  Report Type: Spontaneous
  Country: CA (occurrence: CA)
  Receive Date: 20231116
  Receipt Date: 20231207
  Transmission Date: 20240109
  Serious: No
  Sender: FDA-Public Use
  Company Number: CA-PFIZER INC-2016545782

PATIENT
  Age: 7 Year
  Sex: Male

DRUGS (8)
  1. SOMATROPIN [Suspect]
     Active Substance: SOMATROPIN
     Indication: Growth hormone deficiency
     Dosage: 0.45 MG, DAILY
     Route: 058
     Dates: start: 20160714
  2. SOMATROPIN [Suspect]
     Active Substance: SOMATROPIN
     Dosage: 0.5 MG, DAILY
     Route: 058
     Dates: start: 20160714
  3. SOMATROPIN [Suspect]
     Active Substance: SOMATROPIN
     Dosage: 0.7 MG, DAILY
     Route: 058
  4. SOMATROPIN [Suspect]
     Active Substance: SOMATROPIN
     Dosage: 0.8 MG, DAILY
     Route: 058
     Dates: start: 2022
  5. SOMATROPIN [Suspect]
     Active Substance: SOMATROPIN
     Dosage: 1 MG, DAILY
     Route: 058
     Dates: start: 2022, end: 2023
  6. SOMATROPIN [Suspect]
     Active Substance: SOMATROPIN
     Dosage: 1.1 MG, DAILY
     Route: 058
     Dates: start: 2023
  7. SOMATROPIN [Suspect]
     Active Substance: SOMATROPIN
     Dosage: 1.05 MG, DAILY
     Route: 058
     Dates: start: 202304
  8. SYNTHROID [Concomitant]
     Active Substance: LEVOTHYROXINE SODIUM
     Indication: Thyroid hormones decreased
     Dosage: 25 MG, DAILY
     Route: 048

REACTIONS (2)
  - Hypoacusis [Unknown]
  - Product prescribing error [Unknown]

NARRATIVE: CASE EVENT DATE: 20230101
